FAERS Safety Report 7361203-X (Version None)
Quarter: 2011Q1

REPORT INFORMATION
  Report Type: 
  Country: None (occurrence: None)
  Receive Date: 20110318
  Receipt Date: 20110304
  Transmission Date: 20110831
  Serious: Yes (Hospitalization, Other)
  Sender: FDA-Public Use
  Company Number: PHHY2011US16348

PATIENT
  Sex: Female

DRUGS (4)
  1. ANTIBIOTICS [Concomitant]
  2. SOLEXA [Concomitant]
  3. PRILOZAN [Concomitant]
  4. FEMARA [Suspect]
     Dosage: 2.5 MG, QD

REACTIONS (7)
  - LOSS OF CONSCIOUSNESS [None]
  - BRONCHITIS [None]
  - NAUSEA [None]
  - DEHYDRATION [None]
  - MIGRAINE [None]
  - DIARRHOEA [None]
  - PNEUMONIA [None]
